FAERS Safety Report 5693537-9 (Version None)
Quarter: 2008Q2

REPORT INFORMATION
  Report Type: 
  Country: None (occurrence: None)
  Receive Date: 20080403
  Receipt Date: 20080401
  Transmission Date: 20081010
  Serious: Yes (Disabling)
  Sender: FDA-Public Use
  Company Number: B0512475A

PATIENT
  Age: 61 Year
  Sex: Male

DRUGS (2)
  1. NIQUITIN CQ CLEAR 7MG [Suspect]
     Indication: DRUG WITHDRAWAL MAINTENANCE THERAPY
     Route: 062
     Dates: start: 20071110, end: 20080130
  2. NICORETTE [Concomitant]

REACTIONS (8)
  - ANXIETY [None]
  - DYSPNOEA [None]
  - ILL-DEFINED DISORDER [None]
  - INFLUENZA LIKE ILLNESS [None]
  - NASOPHARYNGITIS [None]
  - NICOTINE DEPENDENCE [None]
  - RESTLESSNESS [None]
  - RHINORRHOEA [None]
